FAERS Safety Report 5714948-9 (Version None)
Quarter: 2008Q2

REPORT INFORMATION
  Report Type: 
  Country: None (occurrence: None)
  Receive Date: 20080423
  Receipt Date: 20080411
  Transmission Date: 20081010
  Serious: Yes (Death)
  Sender: FDA-Public Use
  Company Number: US-ROCHE-535504

PATIENT
  Sex: Male
  Weight: 98.2 kg

DRUGS (12)
  1. MYCOPHENOLATE MOFETIL [Suspect]
     Route: 065
     Dates: start: 20061214
  2. TACROLIMUS [Suspect]
     Route: 048
     Dates: start: 20061214, end: 20070103
  3. TACROLIMUS [Suspect]
     Route: 048
     Dates: start: 20070104, end: 20070104
  4. TACROLIMUS [Suspect]
     Dosage: PERMANENTLY DISCONTINUED.
     Route: 048
     Dates: start: 20070105, end: 20070106
  5. ASPIRIN [Concomitant]
     Dates: start: 20071124
  6. METOPROLOL TARTRATE [Concomitant]
     Dates: start: 20071124
  7. FOLIC ACID [Concomitant]
     Dosage: TAKEN DAILY
     Dates: start: 20071124
  8. MAGNESIUM [Concomitant]
     Dates: start: 20071124
  9. CALCIUM CARBONATE [Concomitant]
     Dates: start: 20071124
  10. PROTONIX [Concomitant]
     Dates: start: 20071124
  11. MYCELEX [Concomitant]
     Dosage: TAKEN DAILY
     Dates: start: 20071124
  12. IRON [Concomitant]
     Dates: start: 20071124

REACTIONS (14)
  - ACID FAST STAIN POSITIVE [None]
  - ASPERGILLOSIS [None]
  - CIRCULATORY COLLAPSE [None]
  - DRUG RESISTANCE [None]
  - ENTEROCOCCAL INFECTION [None]
  - FUSARIUM INFECTION [None]
  - HEPATITIS B POSITIVE [None]
  - HISTIOCYTOSIS HAEMATOPHAGIC [None]
  - MULTI-ORGAN FAILURE [None]
  - PULMONARY HYPERTENSION [None]
  - SEPTIC SHOCK [None]
  - SPUTUM CULTURE POSITIVE [None]
  - STAPHYLOCOCCAL INFECTION [None]
  - TRICUSPID VALVE INCOMPETENCE [None]
